FAERS Safety Report 21529315 (Version 2)
Quarter: 2022Q4

REPORT INFORMATION
  Report Type: Spontaneous
  Country: US (occurrence: US)
  Receive Date: 20221031
  Receipt Date: 20221128
  Transmission Date: 20230112
  Serious: No
  Sender: FDA-Public Use
  Company Number: US-JNJFOC-20221040966

PATIENT
  Age: 71 Year
  Sex: Female
  Weight: 72.186 kg

DRUGS (5)
  1. ELMIRON [Suspect]
     Active Substance: PENTOSAN POLYSULFATE SODIUM
     Indication: Cystitis interstitial
     Dosage: ONE HOUR BEFORE MEAL
     Route: 048
     Dates: start: 20221012
  2. VITAMIN D3 [Concomitant]
     Active Substance: CHOLECALCIFEROL
     Indication: Hypovitaminosis
     Route: 065
     Dates: start: 20210910
  3. ZINC [Concomitant]
     Active Substance: ZINC
     Indication: COVID-19
     Route: 065
     Dates: start: 20220927
  4. AMBIEN [Concomitant]
     Active Substance: ZOLPIDEM TARTRATE
  5. AMITRIPTYLINE [Concomitant]
     Active Substance: AMITRIPTYLINE

REACTIONS (4)
  - Bacteriuria [Unknown]
  - Defaecation urgency [Unknown]
  - Drug ineffective [Unknown]
  - Nasal disorder [Unknown]
